FAERS Safety Report 9109814 (Version 1)
Quarter: 2013Q1

REPORT INFORMATION
  Report Type: Spontaneous
  Country: JP (occurrence: JP)
  Receive Date: 20130222
  Receipt Date: 20130222
  Transmission Date: 20140127
  Serious: Yes (Other)
  Sender: FDA-Public Use
  Company Number: JP-PFIZER INC-2013065599

PATIENT
  Age: 80 Year
  Sex: Female

DRUGS (1)
  1. LYRICA [Suspect]
     Dosage: 50 MG, 2X/DAY
     Route: 048
     Dates: start: 201212

REACTIONS (5)
  - Fall [Unknown]
  - Clavicle fracture [Unknown]
  - Limb injury [Unknown]
  - Vision blurred [Unknown]
  - Somnolence [Unknown]
